FAERS Safety Report 25153101 (Version 1)
Quarter: 2025Q2

REPORT INFORMATION
  Report Type: Report from Study
  Country: US (occurrence: US)
  Receive Date: 20250403
  Receipt Date: 20250403
  Transmission Date: 20250716
  Serious: Yes (Disabling)
  Sender: ABBVIE
  Company Number: US-ABBVIE-6205183

PATIENT
  Sex: Female

DRUGS (2)
  1. BOTOX [Suspect]
     Active Substance: ONABOTULINUMTOXINA
     Indication: Product used for unknown indication
     Route: 065
  2. QULIPTA [Suspect]
     Active Substance: ATOGEPANT
     Indication: Product used for unknown indication
     Route: 048
     Dates: start: 20230801

REACTIONS (3)
  - Cerebrovascular accident [Unknown]
  - Hypoaesthesia [Unknown]
  - Headache [Not Recovered/Not Resolved]
